FAERS Safety Report 6574237-X (Version None)
Quarter: 2010Q1

REPORT INFORMATION
  Report Type: 
  Country: None (occurrence: None)
  Receive Date: 20100208
  Receipt Date: 20100128
  Transmission Date: 20100710
  Serious: Yes (Death)
  Sender: FDA-Public Use
  Company Number: SE-GENENTECH-296607

PATIENT
  Age: 65 Year
  Sex: Male

DRUGS (8)
  1. MABTHERA [Suspect]
     Indication: LYMPHOMA
     Dosage: UNK
     Route: 042
     Dates: start: 20070301, end: 20070716
  2. PREDNISOLON [Suspect]
     Indication: LYMPHOMA
     Dosage: UNK TABLET, UNK
     Route: 048
     Dates: start: 20070301, end: 20070716
  3. CYCLOPHOSPHAMIDE [Suspect]
     Indication: LYMPHOMA
     Dosage: UNK
     Route: 042
     Dates: start: 20070301, end: 20070716
  4. VINCRISTINE [Suspect]
     Indication: LYMPHOMA
     Route: 065
  5. KALCIPOS-D [Concomitant]
     Indication: DRUG USE FOR UNKNOWN INDICATION
     Dosage: UNK TABLET, UNK
  6. PAMOL [Concomitant]
     Indication: DRUG USE FOR UNKNOWN INDICATION
     Dosage: 500 MG, UNK
  7. ACETYLCYSTEINE [Concomitant]
     Indication: DRUG USE FOR UNKNOWN INDICATION
     Dosage: 200 MG, UNK
  8. TRYPTIZOL [Concomitant]
     Indication: DRUG USE FOR UNKNOWN INDICATION
     Dosage: 10 MG, UNK

REACTIONS (11)
  - ARTERIOSCLEROSIS [None]
  - AXONAL NEUROPATHY [None]
  - B-CELL LYMPHOMA RECURRENT [None]
  - CARDIAC FAILURE [None]
  - CRANIAL NERVE DISORDER [None]
  - MALIGNANT NEOPLASM PROGRESSION [None]
  - MONONEUROPATHY MULTIPLEX [None]
  - MUSCLE ATROPHY [None]
  - MYOCARDIAL ISCHAEMIA [None]
  - POLYNEUROPATHY [None]
  - PULMONARY OEDEMA [None]
